FAERS Safety Report 5836103-4 (Version None)
Quarter: 2008Q3

REPORT INFORMATION
  Report Type: 
  Country: None (occurrence: None)
  Receive Date: 20080806
  Receipt Date: 20080728
  Transmission Date: 20090109
  Serious: Yes (Hospitalization)
  Sender: FDA-Public Use
  Company Number: AU-PFIZER INC-2008063090

PATIENT
  Sex: Female

DRUGS (3)
  1. LIPITOR [Suspect]
     Indication: HYPERCHOLESTEROLAEMIA
     Dates: start: 20070401, end: 20080201
  2. ACETYLSALICYLIC ACID SRT [Concomitant]
  3. ANTIEMETICS AND ANTINAUSEANTS [Concomitant]

REACTIONS (7)
  - AMNESIA [None]
  - ARTHRALGIA [None]
  - FATIGUE [None]
  - LOSS OF CONTROL OF LEGS [None]
  - MYALGIA [None]
  - NAUSEA [None]
  - SPEECH DISORDER [None]
